FAERS Safety Report 6020816-8 (Version None)
Quarter: 2008Q4

REPORT INFORMATION
  Report Type: 
  Country: None (occurrence: None)
  Receive Date: 20081229
  Receipt Date: 20081219
  Transmission Date: 20090506
  Serious: Yes (Other)
  Sender: FDA-Public Use
  Company Number: JP-JNJFOC-20081206232

PATIENT
  Age: 12 Year
  Sex: Male

DRUGS (3)
  1. CONCERTA [Suspect]
     Indication: ATTENTION DEFICIT/HYPERACTIVITY DISORDER
     Route: 048
  2. TEGRETOL [Concomitant]
     Indication: EPILEPSY
     Route: 048
  3. LANDSEN [Concomitant]
     Indication: EPILEPSY
     Route: 048

REACTIONS (1)
  - GROWTH RETARDATION [None]
